FAERS Safety Report 18284191 (Version 3)
Quarter: 2020Q3

REPORT INFORMATION
  Report Type: Spontaneous
  Country: US (occurrence: US)
  Receive Date: 20200918
  Receipt Date: 20200924
  Transmission Date: 20201103
  Serious: No
  Sender: FDA-Public Use
  Company Number: US-PFIZER INC-2020357487

PATIENT
  Age: 57 Year
  Sex: Female
  Weight: 65.77 kg

DRUGS (3)
  1. DICLOFEN [DICLOFENAC DIETHYLAMINE] [Concomitant]
     Indication: MUSCLE SPASMS
     Dosage: UNK
  2. XELJANZ XR [Suspect]
     Active Substance: TOFACITINIB CITRATE
     Indication: RHEUMATOID ARTHRITIS
     Dosage: 11 MG, ONE A DAY
     Route: 048
  3. OMEPRAZOLE. [Concomitant]
     Active Substance: OMEPRAZOLE
     Dosage: EVERY DAY

REACTIONS (8)
  - Pyrexia [Recovered/Resolved]
  - Nausea [Recovered/Resolved]
  - Fatigue [Not Recovered/Not Resolved]
  - Headache [Recovered/Resolved]
  - Sleep disorder [Recovered/Resolved]
  - Myalgia [Recovered/Resolved]
  - Body height decreased [Unknown]
  - Illness [Recovered/Resolved]
